FAERS Safety Report 7260512-2 (Version None)
Quarter: 2011Q1

REPORT INFORMATION
  Report Type: 
  Country: None (occurrence: None)
  Receive Date: 20110130
  Receipt Date: 20101217
  Transmission Date: 20110831
  Serious: No
  Sender: FDA-Public Use
  Company Number: US-ABBOTT-10P-163-0692712-00

PATIENT
  Sex: Female
  Weight: 111.23 kg

DRUGS (8)
  1. ASPIRIN [Concomitant]
     Indication: THROMBOSIS PROPHYLAXIS
  2. RAMIJERIL [Concomitant]
     Indication: HYPERTENSION
  3. HUMIRA [Suspect]
     Indication: PSORIASIS
     Dates: start: 20101112, end: 20101112
  4. HUMIRA [Suspect]
     Dates: start: 20101119
  5. ENABLEX [Concomitant]
     Indication: URINARY INCONTINENCE
  6. GLIPIZIDE [Concomitant]
     Indication: DIABETES MELLITUS
  7. CLONAZAPAM [Concomitant]
     Indication: ANXIETY
  8. CYMBALTA [Concomitant]
     Indication: DEPRESSION

REACTIONS (1)
  - ARTHRALGIA [None]
